FAERS Safety Report 9603047 (Version 1)
Quarter: 2013Q4

REPORT INFORMATION
  Report Type: Spontaneous
  Country: US (occurrence: US)
  Receive Date: 20131007
  Receipt Date: 20131007
  Transmission Date: 20140711
  Serious: Yes (Death)
  Sender: FDA-Public Use
  Company Number: US-INCYTE CORPORATION-2013IN002303

PATIENT
  Sex: 0

DRUGS (1)
  1. JAKAFI [Suspect]
     Dosage: 15 MG, BID
     Route: 048

REACTIONS (1)
  - Death [Fatal]
